FAERS Safety Report 21669207 (Version 1)
Quarter: 2022Q4

REPORT INFORMATION
  Report Type: Report from Study
  Country: IL (occurrence: IL)
  Receive Date: 20221201
  Receipt Date: 20221201
  Transmission Date: 20230113
  Serious: Yes (Other)
  Sender: FDA-Public Use
  Company Number: IL-TAKEDA-IL201806652

PATIENT
  Age: 44 Year
  Sex: Female

DRUGS (2)
  1. VELAGLUCERASE ALFA [Suspect]
     Active Substance: VELAGLUCERASE ALFA
     Indication: Gaucher^s disease
     Dosage: 800 INTERNATIONAL UNIT, Q2WEEKS
     Route: 065
     Dates: start: 201506, end: 201811
  2. VELAGLUCERASE ALFA [Suspect]
     Active Substance: VELAGLUCERASE ALFA
     Dosage: 1200 INTERNATIONAL UNIT, Q2WEEKS
     Route: 065

REACTIONS (2)
  - Abortion spontaneous [Unknown]
  - Pregnancy [Unknown]
